FAERS Safety Report 7307209-8 (Version None)
Quarter: 2011Q1

REPORT INFORMATION
  Report Type: 
  Country: None (occurrence: None)
  Receive Date: 20110223
  Receipt Date: 20110218
  Transmission Date: 20110831
  Serious: No
  Sender: FDA-Public Use
  Company Number: US-PFIZER INC-2011036790

PATIENT
  Sex: Female
  Weight: 54.875 kg

DRUGS (7)
  1. LEVOTHYROXINE [Concomitant]
     Dosage: UNK
  2. TOVIAZ [Suspect]
     Indication: INCONTINENCE
     Dosage: 8 MG, UNK
     Route: 048
     Dates: start: 20100101
  3. ATENOLOL [Concomitant]
     Dosage: UNK
  4. TOVIAZ [Suspect]
     Dosage: 4 MG, UNK
     Route: 048
  5. ARICEPT [Concomitant]
     Indication: MEMORY IMPAIRMENT
     Dosage: UNK
     Route: 048
  6. AMLODIPINE [Concomitant]
     Indication: HYPERTENSION
     Dosage: UNK
  7. WARFARIN [Concomitant]
     Dosage: UNK

REACTIONS (1)
  - URINARY INCONTINENCE [None]
